FAERS Safety Report 18092222 (Version 1)
Quarter: 2020Q3

REPORT INFORMATION
  Report Type: Spontaneous
  Country: US (occurrence: US)
  Receive Date: 20200730
  Receipt Date: 20200730
  Transmission Date: 20201103
  Serious: Yes (Hospitalization)
  Sender: FDA-Public Use
  Company Number: None

PATIENT
  Age: 74 Year
  Sex: Male
  Weight: 64 kg

DRUGS (1)
  1. OXALIPLATIN. [Suspect]
     Active Substance: OXALIPLATIN
     Indication: RECTAL ADENOCARCINOMA
     Route: 042
     Dates: start: 20200603, end: 20200603

REACTIONS (9)
  - Nausea [None]
  - Tumour ulceration [None]
  - Orthostatic hypotension [None]
  - Large intestinal ulcer [None]
  - Neutropenia [None]
  - Dizziness [None]
  - Anaemia [None]
  - Diarrhoea [None]
  - Drug intolerance [None]

NARRATIVE: CASE EVENT DATE: 20200618
